FAERS Safety Report 7667680-9 (Version None)
Quarter: 2011Q3

REPORT INFORMATION
  Report Type: 
  Country: None (occurrence: None)
  Receive Date: 20110806
  Receipt Date: 20110727
  Transmission Date: 20111222
  Serious: No
  Sender: FDA-Public Use
  Company Number: US-ABBOTT-11P-163-0842875-00

PATIENT
  Sex: Male
  Weight: 81.266 kg

DRUGS (2)
  1. PROSCAR [Concomitant]
     Indication: HAIR GROWTH ABNORMAL
  2. NIASPAN [Suspect]
     Indication: BLOOD CHOLESTEROL INCREASED
     Dates: start: 20110101, end: 20110726

REACTIONS (3)
  - FLUSHING [None]
  - SENSORY DISTURBANCE [None]
  - BLOOD TRIGLYCERIDES INCREASED [None]
